FAERS Safety Report 16131791 (Version 1)
Quarter: 2019Q1

REPORT INFORMATION
  Report Type: Spontaneous
  Country: US (occurrence: US)
  Receive Date: 20190225
  Receipt Date: 20190225
  Transmission Date: 20190418
  Serious: Yes (Hospitalization)
  Sender: FDA-Public Use
  Company Number: None

PATIENT
  Age: 56 Year
  Sex: Male

DRUGS (1)
  1. TEMOZOLOMIDE 140MG CAP [Suspect]
     Active Substance: TEMOZOLOMIDE
     Route: 048
     Dates: start: 20190207

REACTIONS (4)
  - Pulmonary thrombosis [None]
  - Hepatic enzyme increased [None]
  - Hypotension [None]
  - Thrombosis [None]

NARRATIVE: CASE EVENT DATE: 20190223
